FAERS Safety Report 8349744 (Version 5)
Quarter: 2013Q1

REPORT INFORMATION
  Report Type: Report from Study
  Country: US (occurrence: US)
  Receive Date: 20120123
  Receipt Date: 20130226
  Transmission Date: 20140127
  Serious: Yes (Death)
  Sender: FDA-Public Use
  Company Number: US-UCBSA-049676

PATIENT
  Age: 50 Year
  Sex: Male
  Weight: 86.18 kg

DRUGS (7)
  1. LACOSAMIDE [Suspect]
     Indication: EPILEPSY
     Dosage: 400 MG/DAY FREQ:TWICE DAILY
     Route: 048
     Dates: start: 20111128, end: 20120106
  2. BC [Concomitant]
     Indication: HEADACHE
     Dosage: 1 PACKET; POWDER
     Dates: start: 19920101
  3. TYLENOL [Concomitant]
     Indication: HEADACHE
     Dates: start: 19920101
  4. MELATONIN [Concomitant]
     Indication: INSOMNIA
     Dosage: AT NIGHT
     Dates: start: 20000601
  5. LAMOTRIGINE [Concomitant]
     Dates: start: 20110711, end: 20111221
  6. LAMOTRIGINE [Concomitant]
     Dosage: 200 MG IN THE MORNING AND 100 MG IN THE EVENING
     Dates: start: 20111221, end: 20120103
  7. LAMOTRIGINE [Concomitant]
     Dosage: IN THE MORNING
     Dates: start: 20120104, end: 201201

REACTIONS (1)
  - Sudden unexplained death in epilepsy [Fatal]
